FAERS Safety Report 21121748 (Version 1)
Quarter: 2022Q3

REPORT INFORMATION
  Report Type: Spontaneous
  Country: US (occurrence: US)
  Receive Date: 20220722
  Receipt Date: 20220722
  Transmission Date: 20221027
  Serious: Yes (Other)
  Sender: FDA-Public Use
  Company Number: US-GLAXOSMITHKLINE-USCH2022AMR024800

PATIENT

DRUGS (4)
  1. LORATADINE [Suspect]
     Active Substance: LORATADINE
     Indication: Product used for unknown indication
     Dosage: UNK
     Route: 048
  2. DIPHENHYDRAMINE HYDROCHLORIDE\PSEUDOEPHEDRINE HYDROCHLORIDE [Suspect]
     Active Substance: DIPHENHYDRAMINE HYDROCHLORIDE\PSEUDOEPHEDRINE HYDROCHLORIDE
     Indication: Product used for unknown indication
     Dosage: UNK
  3. DIFLUCAN [Suspect]
     Active Substance: FLUCONAZOLE
     Indication: Product used for unknown indication
     Dosage: 2 DF
     Dates: start: 202112
  4. CANNABIS SATIVA SUBSP. INDICA TOP [Concomitant]
     Active Substance: CANNABIS SATIVA SUBSP. INDICA TOP
     Indication: Product used for unknown indication

REACTIONS (22)
  - Gastrointestinal haemorrhage [Unknown]
  - Haemorrhage [Unknown]
  - Vaginal haemorrhage [Unknown]
  - Eye irritation [Unknown]
  - Throat irritation [Unknown]
  - Nasal discomfort [Unknown]
  - Vulvovaginal burning sensation [Unknown]
  - Anorectal discomfort [Unknown]
  - Ocular hyperaemia [Unknown]
  - Abdominal discomfort [Unknown]
  - Fatigue [Unknown]
  - Asthenia [Unknown]
  - Illness [Unknown]
  - Headache [Unknown]
  - Dizziness [Unknown]
  - Dry skin [Unknown]
  - Abdominal discomfort [Unknown]
  - Feeding disorder [Unknown]
  - Body temperature fluctuation [Unknown]
  - Condition aggravated [Unknown]
  - Tinnitus [Unknown]
  - Faeces discoloured [Unknown]
